FAERS Safety Report 8865462 (Version 1)
Quarter: 2012Q4

REPORT INFORMATION
  Report Type: 
  Country: US (occurrence: US)
  Receive Date: 20121024
  Receipt Date: 20121024
  Transmission Date: 20130627
  Serious: No
  Sender: FDA-Public Use
  Company Number: US-AMGEN-USASP2012003556

PATIENT
  Sex: Male

DRUGS (8)
  1. ENBREL [Suspect]
     Indication: PRODUCT USED FOR UNKNOWN INDICATION
     Dosage: 50 mg, qwk
     Route: 058
  2. LOVASTATIN [Concomitant]
     Dosage: 40 mg, UNK
  3. GEMFIBROZIL [Concomitant]
     Dosage: 600 mg, UNK
  4. DILTIAZEM [Concomitant]
     Dosage: 120 mg, UNK
  5. LEVOTHYROXIN [Concomitant]
     Dosage: 125 mug, UNK
  6. ASPIRIN [Concomitant]
     Dosage: 81 mg, UNK
  7. OMEPRAZOLE [Concomitant]
     Dosage: 20 mg, UNK
  8. HYDROCODONE W/APAP [Concomitant]

REACTIONS (3)
  - Injection site erythema [Unknown]
  - Injection site pruritus [Unknown]
  - Injection site discolouration [Unknown]
